FAERS Safety Report 8780300 (Version 1)
Quarter: 2012Q4

REPORT INFORMATION
  Report Type: Spontaneous
  Country: US (occurrence: None)
  Receive Date: 20120905
  Receipt Date: 20120905
  Transmission Date: 20130627
  Serious: Yes (Death)
  Sender: FDA-Public Use
  Company Number: None

PATIENT
  Age: 55 Year
  Sex: Male
  Weight: 90.72 kg

DRUGS (1)
  1. LUCENTIS [Suspect]
     Indication: DIABETIC MACULAR EDEMA
     Dates: start: 20100901, end: 20120409

REACTIONS (1)
  - Myocardial infarction [None]
